FAERS Safety Report 5382346-6 (Version None)
Quarter: 2007Q2

REPORT INFORMATION
  Report Type: 
  Country: None (occurrence: None)
  Receive Date: 20070629
  Receipt Date: 20070301
  Transmission Date: 20071010
  Serious: Yes (Death)
  Sender: FDA-Public Use
  Company Number: US200702000784

PATIENT
  Age: 37 Year
  Sex: Male
  Weight: 125.2 kg

DRUGS (1)
  1. HUMALOG MIX 50/50 [Suspect]
     Indication: DIABETES MELLITUS
     Dosage: 40 U, 3/D
     Dates: start: 20060114

REACTIONS (1)
  - MYOCARDIAL INFARCTION [None]
